FAERS Safety Report 5486211-5 (Version None)
Quarter: 2007Q4

REPORT INFORMATION
  Report Type: 
  Country: None (occurrence: None)
  Receive Date: 20071005
  Receipt Date: 20070725
  Transmission Date: 20080405
  Serious: No
  Sender: FDA-Public Use
  Company Number: PHEH2007US10425

PATIENT
  Sex: Female

DRUGS (2)
  1. TEKTURNA [Suspect]
     Dates: start: 20070723
  2. TEKTURNA [Suspect]
     Dates: start: 20070724

REACTIONS (1)
  - HYPERTENSION [None]
